FAERS Safety Report 5515540-1 (Version None)
Quarter: 2007Q4

REPORT INFORMATION
  Report Type: 
  Country: None (occurrence: None)
  Receive Date: 20071113
  Receipt Date: 20070326
  Transmission Date: 20080405
  Serious: No
  Sender: FDA-Public Use
  Company Number: A0644622A

PATIENT
  Age: 84 Year
  Sex: Female

DRUGS (6)
  1. COREG [Suspect]
     Dosage: 25MG TWICE PER DAY
     Route: 048
     Dates: start: 20070305
  2. BENICAR [Concomitant]
  3. LASIX [Concomitant]
  4. AMIODARONE [Concomitant]
  5. CLONIDINE [Concomitant]
  6. ASPIRIN [Concomitant]

REACTIONS (6)
  - ANOREXIA [None]
  - COUGH [None]
  - FATIGUE [None]
  - FLUID RETENTION [None]
  - INSOMNIA [None]
  - RESPIRATORY TRACT CONGESTION [None]
